FAERS Safety Report 23637802 (Version 1)
Quarter: 2024Q1

REPORT INFORMATION
  Report Type: Spontaneous
  Country: US (occurrence: US)
  Receive Date: 20240315
  Receipt Date: 20240315
  Transmission Date: 20240410
  Serious: Yes (Death, Other)
  Sender: FDA-Public Use
  Company Number: US-Indivior Limited-INDV-143563-2024

PATIENT

DRUGS (2)
  1. SUBLOCADE [Suspect]
     Active Substance: BUPRENORPHINE
     Indication: Drug dependence
     Dosage: 300 MILLIGRAM, ONE TIME DOSE
     Route: 058
     Dates: start: 20230817
  2. SUBLOCADE [Suspect]
     Active Substance: BUPRENORPHINE

REACTIONS (1)
  - Intracranial haematoma [Fatal]

NARRATIVE: CASE EVENT DATE: 20230817
